FAERS Safety Report 8830033 (Version 4)
Quarter: 2021Q1

REPORT INFORMATION
  Report Type: Spontaneous
  Country: US (occurrence: US)
  Receive Date: 20121008
  Receipt Date: 20210118
  Transmission Date: 20210420
  Serious: Yes (Hospitalization, Other)
  Sender: FDA-Public Use
  Company Number: US-009507513-1202USA02274

PATIENT
  Sex: Female
  Weight: 64.85 kg

DRUGS (21)
  1. FOSAMAX [Suspect]
     Active Substance: ALENDRONATE SODIUM
     Indication: OSTEOPOROSIS
     Dosage: 70 MG, QW
     Route: 048
     Dates: start: 20020330, end: 20060413
  2. POTASSIUM (UNSPECIFIED) [Concomitant]
     Active Substance: POTASSIUM
  3. LODINE [Concomitant]
     Active Substance: ETODOLAC
     Dosage: 400 MILLIGRAM, BID
  4. FOSAMAX [Suspect]
     Active Substance: ALENDRONATE SODIUM
     Dosage: 10 MG, QD
     Route: 048
     Dates: start: 20000816
  5. FOSAMAX PLUS D [Suspect]
     Active Substance: ALENDRONATE SODIUM\CHOLECALCIFEROL
     Dosage: UNK
     Route: 048
     Dates: start: 200203, end: 2009
  6. ZANTAC [Concomitant]
     Active Substance: RANITIDINE HYDROCHLORIDE
     Dosage: 150 MILLIGRAM, BID
  7. CALCIUM (UNSPECIFIED) [Concomitant]
     Active Substance: CALCIUM
  8. CALCIUM (UNSPECIFIED) (+) VITAMIN D (UNSPECIFIED) [Concomitant]
     Active Substance: CALCIUM CARBONATE\VITAMIN D
     Dosage: 600 MILLIGRAM, BID
  9. ASPIRIN. [Concomitant]
     Active Substance: ASPIRIN
     Dosage: 325 MILLIGRAM, QD
  10. DITROPAN [Concomitant]
     Active Substance: OXYBUTYNIN CHLORIDE
  11. SYNTHROID [Concomitant]
     Active Substance: LEVOTHYROXINE SODIUM
     Dosage: 0.1 MILLIGRAM, QD
  12. DETROL [Concomitant]
     Active Substance: TOLTERODINE TARTRATE
     Dosage: 2 MILLIGRAM, BID
     Route: 048
  13. VIOXX [Concomitant]
     Active Substance: ROFECOXIB
     Dosage: 25 MILLIGRAM, PRN
  14. FOSAMAX [Suspect]
     Active Substance: ALENDRONATE SODIUM
     Indication: OSTEOPOROSIS
     Dosage: UNK
     Route: 048
     Dates: start: 20020330, end: 20060413
  15. ZOCOR [Concomitant]
     Active Substance: SIMVASTATIN
     Dosage: 10 MILLIGRAM, QD
     Route: 048
  16. COLACE [Concomitant]
     Active Substance: DOCUSATE SODIUM
     Dosage: UNK, PRN
  17. BONIVA [Suspect]
     Active Substance: IBANDRONATE SODIUM
     Indication: OSTEOPOROSIS
     Dosage: UNK
  18. IBANDRONATE SODIUM. [Suspect]
     Active Substance: IBANDRONATE SODIUM
     Dosage: UNK
     Dates: start: 200203, end: 2009
  19. PREMARIN [Concomitant]
     Active Substance: ESTROGENS, CONJUGATED
     Indication: HORMONE THERAPY
     Dosage: UNK
     Dates: start: 1992
  20. VITAMIN D (UNSPECIFIED) [Concomitant]
     Active Substance: VITAMIN D NOS
  21. VITAMINS (UNSPECIFIED) [Concomitant]
     Active Substance: VITAMINS

REACTIONS (88)
  - Scoliosis [Unknown]
  - Tendonitis [Unknown]
  - Gout [Unknown]
  - Muscle spasms [Unknown]
  - Pain in extremity [Unknown]
  - Cataract operation [Unknown]
  - Headache [Unknown]
  - Chondrocalcinosis [Unknown]
  - Hypoaesthesia [Unknown]
  - Cystitis [Unknown]
  - Anal incontinence [Unknown]
  - Hypertonic bladder [Not Recovered/Not Resolved]
  - Bursitis [Unknown]
  - Osteoarthritis [Unknown]
  - Urinary tract infection [Unknown]
  - Pain in extremity [Not Recovered/Not Resolved]
  - Groin pain [Unknown]
  - Abdominal pain [Unknown]
  - Haemorrhoids [Unknown]
  - Intervertebral disc disorder [Unknown]
  - Osteoarthritis [Unknown]
  - Atypical fracture [Unknown]
  - Pathological fracture [Unknown]
  - Intramedullary rod insertion [Unknown]
  - Fatigue [Unknown]
  - Gingival disorder [Unknown]
  - Bursitis [Unknown]
  - White blood cell count increased [Unknown]
  - Trigger finger [Unknown]
  - Fall [Unknown]
  - Osteoarthritis [Unknown]
  - Arthritis [Unknown]
  - Trigger finger [Unknown]
  - Pain in jaw [Unknown]
  - Chest pain [Unknown]
  - Arthralgia [Unknown]
  - Kyphoscoliosis [Unknown]
  - Rectal haemorrhage [Recovered/Resolved]
  - Ligament sprain [Unknown]
  - Carotid bruit [Unknown]
  - Sclerotherapy [Unknown]
  - Peripheral venous disease [Unknown]
  - Arthritis [Unknown]
  - Dyspepsia [Unknown]
  - Rotator cuff syndrome [Unknown]
  - Hypercalcaemia [Unknown]
  - Shoulder arthroplasty [Unknown]
  - Bursitis [Unknown]
  - Fall [Unknown]
  - Fall [Unknown]
  - Abdominal pain upper [Recovered/Resolved]
  - Frequent bowel movements [Unknown]
  - Open reduction of fracture [Unknown]
  - Femur fracture [Recovered/Resolved]
  - Adverse drug reaction [Unknown]
  - Large intestine polyp [Unknown]
  - Hiatus hernia [Unknown]
  - Morton^s neuralgia [Unknown]
  - Arthralgia [Unknown]
  - Chest discomfort [Unknown]
  - Pain in extremity [Unknown]
  - Seborrhoeic keratosis [Unknown]
  - Joint arthroplasty [Unknown]
  - Femur fracture [Unknown]
  - Hot flush [Unknown]
  - Intervertebral disc degeneration [Unknown]
  - Anaemia postoperative [Unknown]
  - Hypertension [Unknown]
  - Gastrooesophageal reflux disease [Unknown]
  - Arthralgia [Unknown]
  - Musculoskeletal pain [Unknown]
  - Muscular weakness [Unknown]
  - Osteonecrosis [Unknown]
  - Spinal fusion surgery [Unknown]
  - Cervical dysplasia [Unknown]
  - Varicose vein [Unknown]
  - Fibrocystic breast disease [Unknown]
  - Lumbar radiculopathy [Unknown]
  - Spondylolisthesis [Unknown]
  - Spinal osteoarthritis [Unknown]
  - Dyspnoea exertional [Unknown]
  - Pain in extremity [Unknown]
  - Dyspepsia [Unknown]
  - Nocturia [Unknown]
  - Postmenopause [Unknown]
  - Drug dependence [Unknown]
  - Pain in jaw [Recovered/Resolved]
  - Lumbar radiculopathy [Unknown]

NARRATIVE: CASE EVENT DATE: 20000821
